FAERS Safety Report 18578513 (Version 3)
Quarter: 2021Q1

REPORT INFORMATION
  Report Type: Spontaneous
  Country: GB (occurrence: GB)
  Receive Date: 20201204
  Receipt Date: 20210129
  Transmission Date: 20210419
  Serious: Yes (Other)
  Sender: FDA-Public Use
  Company Number: GB-REGENERON PHARMACEUTICALS, INC.-2020-91968

PATIENT

DRUGS (1)
  1. EYLEA [Suspect]
     Active Substance: AFLIBERCEPT
     Indication: PRODUCT USED FOR UNKNOWN INDICATION
     Dosage: UNK, ONCE
     Dates: start: 20201126, end: 20201126

REACTIONS (6)
  - Intraocular pressure increased [Unknown]
  - Hyphaema [Unknown]
  - Corneal oedema [Unknown]
  - Device use issue [Unknown]
  - Visual impairment [Unknown]
  - Corneal opacity [Unknown]

NARRATIVE: CASE EVENT DATE: 20201126
